FAERS Safety Report 4788862-X (Version None)
Quarter: 2005Q3

REPORT INFORMATION
  Report Type: 
  Country: None (occurrence: None)
  Receive Date: 20050929
  Receipt Date: 20050915
  Transmission Date: 20060218
  Serious: Yes (Hospitalization, Other)
  Sender: FDA-Public Use
  Company Number: RHO/05/03/SWE

PATIENT
  Age: 32 Year
  Sex: Female

DRUGS (7)
  1. RHOPHYLAC (ANTI-D IMMUNOGLOBULIN) (ZLB BEHRING) [Suspect]
     Indication: PROPHYLAXIS
     Dosage: 1500 IU DAILY IM
     Route: 030
     Dates: start: 20050201, end: 20050201
  2. RHOPHYLAC (ANTI-D IMMUNOGLOBULIN) (ZLB BEHRING) [Suspect]
     Indication: RHESUS INCOMPATIBILITY
     Dosage: 1500 IU DAILY IM
     Route: 030
     Dates: start: 20050201, end: 20050201
  3. ACETAMINOPHEN [Concomitant]
  4. SYNTOCINON [Concomitant]
  5. SUFENTA [Concomitant]
  6. GLUCOSE [Concomitant]
  7. RINGER-ACETAT [Concomitant]

REACTIONS (1)
  - RASH PRURITIC [None]
